FAERS Safety Report 7057318-6 (Version None)
Quarter: 2010Q4

REPORT INFORMATION
  Report Type: 
  Country: None (occurrence: None)
  Receive Date: 20101022
  Receipt Date: 20101021
  Transmission Date: 20110411
  Serious: Yes (Death, Life-Threatening)
  Sender: FDA-Public Use
  Company Number: US-BRISTOL-MYERS SQUIBB COMPANY-15339195

PATIENT
  Age: 36 Year
  Sex: Male

DRUGS (1)
  1. METFORMIN HCL [Suspect]
     Indication: HYPERGLYCAEMIA

REACTIONS (2)
  - HEPATORENAL SYNDROME [None]
  - LACTIC ACIDOSIS [None]
